FAERS Safety Report 10339920 (Version 2)
Quarter: 2014Q3

REPORT INFORMATION
  Report Type: Report from Study
  Country: JP (occurrence: JP)
  Receive Date: 20140724
  Receipt Date: 20140805
  Transmission Date: 20150326
  Serious: Yes (Hospitalization)
  Sender: FDA-Public Use
  Company Number: JP-AMGEN-JPNCT2014055874

PATIENT
  Sex: Male
  Weight: 48 kg

DRUGS (13)
  1. DECADRON [Concomitant]
     Active Substance: DEXAMETHASONE
     Indication: PRODUCT USED FOR UNKNOWN INDICATION
     Dosage: UNK
     Route: 065
     Dates: start: 20130605, end: 20140403
  2. PREDNISOLONE. [Concomitant]
     Active Substance: PREDNISOLONE
     Indication: PRODUCT USED FOR UNKNOWN INDICATION
     Dosage: UNK
     Route: 065
     Dates: start: 20120606, end: 20130605
  3. AUGMENTIN [Concomitant]
     Active Substance: AMOXICILLIN\CLAVULANATE POTASSIUM
     Dosage: 750 MG, QD
     Route: 048
     Dates: start: 20131129, end: 20131206
  4. URSO                               /00465701/ [Concomitant]
     Dosage: 300 MG, QD
     Route: 048
     Dates: start: 20140129
  5. MAGLAX [Concomitant]
     Active Substance: MAGNESIUM OXIDE
     Dosage: 750 MG, QD
     Route: 048
  6. DENOSUMAB [Suspect]
     Active Substance: DENOSUMAB
     Indication: METASTASES TO BONE
     Dosage: 120 MG, UNK
     Route: 058
     Dates: start: 20120801, end: 20130925
  7. ZOMETA [Concomitant]
     Active Substance: ZOLEDRONIC ACID
     Indication: PRODUCT USED FOR UNKNOWN INDICATION
     Dosage: 4MG/DAY
     Route: 042
     Dates: start: 20110322, end: 20120606
  8. CALCIUM LACTATE [Concomitant]
     Active Substance: CALCIUM LACTATE
     Dosage: 4 G, QD
     Route: 048
     Dates: start: 20130801, end: 20140403
  9. ZOLADEX                            /00732102/ [Concomitant]
     Dosage: UNK
     Route: 065
     Dates: start: 20120411, end: 20131218
  10. LOXONIN [Concomitant]
     Active Substance: LOXOPROFEN SODIUM
     Dosage: 180 MG, QD
     Route: 048
     Dates: end: 20131205
  11. TAKEPRON [Concomitant]
     Active Substance: LANSOPRAZOLE
     Dosage: 15 MG, QD
     Route: 048
     Dates: end: 20140403
  12. CLINDAMYCIN [Concomitant]
     Active Substance: CLINDAMYCIN\CLINDAMYCIN PHOSPHATE
     Dosage: 900 MG, QD
     Route: 048
     Dates: start: 20131211, end: 20140129
  13. CALONAL [Concomitant]
     Active Substance: ACETAMINOPHEN
     Dosage: 1200 MG, QD
     Route: 048
     Dates: start: 20131206, end: 20140403

REACTIONS (3)
  - Hypophosphataemia [Not Recovered/Not Resolved]
  - Cellulitis [Recovering/Resolving]
  - Osteomyelitis [Recovering/Resolving]

NARRATIVE: CASE EVENT DATE: 20130828
